FAERS Safety Report 9559297 (Version 2)
Quarter: 2014Q2

REPORT INFORMATION
  Report Type: Spontaneous
  Country: US (occurrence: None)
  Receive Date: 20130906
  Receipt Date: 20140416
  Transmission Date: 20141212
  Serious: No
  Sender: FDA-Public Use
  Company Number: 163-POMAL-13053186

PATIENT
  Age: 57 Year
  Sex: Female
  Weight: 72.6 kg

DRUGS (10)
  1. POMALYST [Suspect]
     Indication: PLASMA CELL MYELOMA
     Route: 048
     Dates: start: 20130418
  2. VALACYCLOVIR HCL (VALACICLOVIR HYDROCHLORIDE) [Concomitant]
  3. SIMVASTATIN [Concomitant]
  4. LISINOPRIL(LISINOPRIL)(TABLETS) [Concomitant]
  5. ASPIRIN(ACETYLSALICYLIC ACID)(CHEWABLE TABLET) 1) NOT PROVIDED, PO [Concomitant]
  6. ACETYL-L-CARNITINE HCL(ACETYLCARNITINE)(POWDER) :1) UNK [Concomitant]
  7. DEXAMETHASONE(DEXAMETHASONE)(TABLETS) 1) NOT PROVIDED, PO [Concomitant]
  8. METOPROLOL SUCCINATE(METOPROLOL SUCCINATE)(SUSTAINED-RELEASE TABLET) 1) [Concomitant]
  9. VITAMIN B6(PYRIDOXINE HYDROCHLORIDE)(TABLETS [Concomitant]
  10. ATIVAN(LORAZEPAM)(TABLETS) [Concomitant]

REACTIONS (8)
  - Rash pruritic [None]
  - Rash erythematous [None]
  - Drug dose omission [None]
  - Fatigue [None]
  - Back pain [None]
  - Myalgia [None]
  - Rash [None]
  - Drug ineffective [None]
